FAERS Safety Report 15483822 (Version 2)
Quarter: 2018Q4

REPORT INFORMATION
  Report Type: Spontaneous
  Country: US (occurrence: US)
  Receive Date: 20181010
  Receipt Date: 20181211
  Transmission Date: 20190205
  Serious: No
  Sender: FDA-Public Use
  Company Number: US-SA-2018SA279984

PATIENT
  Age: 50 Year
  Sex: Female

DRUGS (1)
  1. LANTUS [Suspect]
     Active Substance: INSULIN GLARGINE
     Indication: TYPE 2 DIABETES MELLITUS
     Dosage: 35U QAM + 30U QHS, BID
     Route: 058
     Dates: start: 20071016

REACTIONS (2)
  - Inappropriate schedule of product administration [Unknown]
  - Device operational issue [Unknown]

NARRATIVE: CASE EVENT DATE: 20110314
